FAERS Safety Report 8610614 (Version 2)
Quarter: 2012Q4

REPORT INFORMATION
  Report Type: 
  Country: US (occurrence: US)
  Receive Date: 20120612
  Receipt Date: 20121023
  Transmission Date: 20130627
  Serious: Yes (Other)
  Sender: FDA-Public Use
  Company Number: US-BAYER-2012-057623

PATIENT
  Age: 82 Year
  Sex: Female
  Weight: 61.22 kg

DRUGS (7)
  1. ALEVE CAPLET/TABLET,MIDOL EXTENDED RELIEF CAPLET [Suspect]
     Indication: BACK ACHE
     Dosage: The consumer reported that she took 4 tablets twice daily as nedded.
     Route: 048
  2. SYNTHROID [Concomitant]
     Dosage: dose: 75
     Dates: start: 1958
  3. VITAMIN D [Concomitant]
     Dosage: dose: 1000 (2 per day)
  4. VITAMIN B6 [Concomitant]
     Dosage: dose: 100 (3 per day)
     Dates: start: 2000
  5. GLUCOSAMINE [Concomitant]
     Dosage: 2 per day
  6. THERA TEARS [Concomitant]
     Dosage: 1200 mg, QID
     Dates: start: 2004
  7. GARLIC [Concomitant]
     Dosage: dose: 1000
     Dates: start: 2008

REACTIONS (1)
  - Epistaxis [Recovered/Resolved]
